FAERS Safety Report 24989709 (Version 3)
Quarter: 2025Q2

REPORT INFORMATION
  Report Type: Report from Study
  Country: US (occurrence: US)
  Receive Date: 20250220
  Receipt Date: 20250531
  Transmission Date: 20250716
  Serious: Yes (Hospitalization)
  Sender: STEMLINE THERAPEUTICS
  Company Number: US-STEMLINE THERAPEUTICS B.V.-2025-STML-US000052

PATIENT

DRUGS (2)
  1. ORSERDU [Suspect]
     Active Substance: ELACESTRANT
     Indication: Breast cancer female
     Route: 065
     Dates: start: 20250109
  2. ORSERDU [Suspect]
     Active Substance: ELACESTRANT
     Route: 065

REACTIONS (9)
  - Influenza [Unknown]
  - Pain [Unknown]
  - Eye disorder [Unknown]
  - Tumour marker increased [Unknown]
  - Tremor [Unknown]
  - Full blood count abnormal [Unknown]
  - Nasopharyngitis [Unknown]
  - Illness [Unknown]
  - Nausea [Unknown]
